FAERS Safety Report 17407844 (Version 4)
Quarter: 2022Q2

REPORT INFORMATION
  Report Type: Spontaneous
  Country: US (occurrence: US)
  Receive Date: 20200212
  Receipt Date: 20220418
  Transmission Date: 20220720
  Serious: No
  Sender: FDA-Public Use
  Company Number: US-PFIZER INC-2020058868

PATIENT
  Age: 41 Year
  Sex: Female

DRUGS (3)
  1. XELJANZ XR [Suspect]
     Active Substance: TOFACITINIB CITRATE
     Indication: Rheumatoid arthritis
     Dosage: 11 MG, DAILY
     Route: 048
  2. XELJANZ XR [Suspect]
     Active Substance: TOFACITINIB CITRATE
     Dosage: UNK
  3. XELJANZ XR [Suspect]
     Active Substance: TOFACITINIB CITRATE
     Dosage: 11 MG, 1X/DAY
     Route: 048
     Dates: start: 202109

REACTIONS (5)
  - Musculoskeletal stiffness [Unknown]
  - Joint stiffness [Unknown]
  - Swelling [Unknown]
  - Inflammation [Unknown]
  - Condition aggravated [Recovered/Resolved]

NARRATIVE: CASE EVENT DATE: 20210101
